FAERS Safety Report 7310534-8 (Version None)
Quarter: 2011Q1

REPORT INFORMATION
  Report Type: 
  Country: None (occurrence: None)
  Receive Date: 20110210
  Receipt Date: 20110126
  Transmission Date: 20110831
  Serious: Yes (Other)
  Sender: FDA-Public Use
  Company Number: GER/USA/11/0017326

PATIENT
  Age: 54 Year
  Sex: Female

DRUGS (2)
  1. VALPROIC ACID [Suspect]
     Indication: CONVULSION
     Dosage: 750 MG, 1 IN 1 D, SINGLE BOLUS OF 1500 MG (23MG/KG), INTRAVENOUS (NOT OTHERWISE SPECIFIED)
     Route: 042
  2. DORIPENEM (DORIPENEM) [Suspect]
     Indication: PRODUCT USED FOR UNKNOWN INDICATION
     Dosage: 500 MG, 1 IN 8 HR, INTRAVENOUS (NOT OTHERWISE SPECIFIED)
     Route: 042

REACTIONS (2)
  - POTENTIATING DRUG INTERACTION [None]
  - ANTICONVULSANT DRUG LEVEL DECREASED [None]
